FAERS Safety Report 22787269 (Version 3)
Quarter: 2024Q2

REPORT INFORMATION
  Report Type: Spontaneous
  Country: PT (occurrence: PT)
  Receive Date: 20230804
  Receipt Date: 20240606
  Transmission Date: 20240716
  Serious: Yes (Other)
  Sender: FDA-Public Use
  Company Number: PT-009507513-2307PRT008908

PATIENT
  Age: 40 Year
  Sex: Male

DRUGS (6)
  1. MEROPENEM [Suspect]
     Active Substance: MEROPENEM
     Indication: Campylobacter infection
     Dosage: UNK
     Route: 065
     Dates: start: 200912, end: 201001
  2. MEROPENEM [Suspect]
     Active Substance: MEROPENEM
     Dosage: UNK
     Route: 065
     Dates: start: 201612, end: 201612
  3. ERTAPENEM SODIUM [Suspect]
     Active Substance: ERTAPENEM SODIUM
     Indication: Campylobacter infection
     Dosage: UNK
     Route: 065
     Dates: start: 201610, end: 201610
  4. ERTAPENEM SODIUM [Suspect]
     Active Substance: ERTAPENEM SODIUM
     Dosage: UNK
     Dates: start: 201611, end: 201611
  5. GENTAMICIN [Suspect]
     Active Substance: GENTAMICIN
     Indication: Campylobacter infection
     Dosage: UNK
     Route: 065
     Dates: start: 200912, end: 201001
  6. GENTAMICIN [Suspect]
     Active Substance: GENTAMICIN
     Dosage: UNK
     Route: 065
     Dates: start: 201001, end: 201003

REACTIONS (2)
  - Pathogen resistance [Unknown]
  - Product use in unapproved indication [Unknown]
